FAERS Safety Report 24628321 (Version 1)
Quarter: 2024Q4

REPORT INFORMATION
  Report Type: Spontaneous
  Country: DE (occurrence: DE)
  Receive Date: 20241117
  Receipt Date: 20241117
  Transmission Date: 20250114
  Serious: Yes (Other)
  Sender: ALEXION PHARMACEUTICALS
  Company Number: DE-DCGMA-24204161

PATIENT
  Age: 60 Year
  Weight: 58 kg

DRUGS (7)
  1. TAGRISSO [Suspect]
     Active Substance: OSIMERTINIB
     Indication: Non-small cell lung cancer
     Dosage: DAILY DOSE: 80 MG EVERY 1 DAY
  2. ASPIRIN [Concomitant]
     Active Substance: ASPIRIN
     Dosage: DAILY DOSE: 100 MG EVERY 1 DAY
  3. EPLERENONE [Concomitant]
     Active Substance: EPLERENONE
     Dosage: DAILY DOSE: 25 MG EVERY 1 DAY
  4. BISOPROLOL [Concomitant]
     Active Substance: BISOPROLOL
     Dosage: DAILY DOSE: 5 MG EVERY 1 DAY
  5. ROSUVASTATIN [Concomitant]
     Active Substance: ROSUVASTATIN
     Dosage: DAILY DOSE: 5 MG EVERY 1 DAY
  6. LOPERAMIDE [Concomitant]
     Active Substance: LOPERAMIDE
     Dosage: DAILY DOSE: 2 MG EVERY 00:00:01
  7. CANDESARTAN [Concomitant]
     Active Substance: CANDESARTAN
     Dosage: 16-0-8 MG/DDAILY DOSE: 24 MG EVERY 00:00:01

REACTIONS (1)
  - Iridocyclitis [Not Recovered/Not Resolved]
